FAERS Safety Report 10434784 (Version 1)
Quarter: 2014Q3

REPORT INFORMATION
  Report Type: Spontaneous
  Country: US (occurrence: None)
  Receive Date: 20140815
  Receipt Date: 20140815
  Transmission Date: 20150326
  Serious: No
  Sender: FDA-Public Use
  Company Number: 2014TUS003783

PATIENT
  Age: 52 Year
  Sex: Female
  Weight: 54.4 kg

DRUGS (2)
  1. WELLBUTRIN [Concomitant]
     Active Substance: BUPROPION HYDROCHLORIDE
  2. BRINTELLIX [Suspect]
     Active Substance: VORTIOXETINE HYDROBROMIDE
     Indication: MAJOR DEPRESSION
     Route: 048
     Dates: start: 20140418, end: 20140427

REACTIONS (5)
  - Decreased appetite [None]
  - Flat affect [None]
  - Drug ineffective [None]
  - Depression [None]
  - Nausea [None]
